FAERS Safety Report 15348454 (Version 2)
Quarter: 2018Q3

REPORT INFORMATION
  Report Type: Spontaneous
  Country: FR (occurrence: FR)
  Receive Date: 20180904
  Receipt Date: 20180917
  Transmission Date: 20181010
  Serious: Yes (Life-Threatening, Other)
  Sender: FDA-Public Use
  Company Number: FR-ALSI-201800500

PATIENT
  Age: 40 Year
  Sex: Male

DRUGS (5)
  1. OXYGEN. [Suspect]
     Active Substance: OXYGEN
     Indication: GENERAL ANAESTHESIA
     Route: 055
     Dates: start: 20180821, end: 20180821
  2. MORPHINE [Concomitant]
     Active Substance: MORPHINE
     Dates: start: 20180821, end: 20180821
  3. SEVOFLURANE. [Concomitant]
     Active Substance: SEVOFLURANE
     Dates: start: 20180821, end: 20180821
  4. AIR, MEDICINAL [Concomitant]
     Dates: start: 20180821, end: 20180821
  5. DIPRIVAN [Concomitant]
     Active Substance: PROPOFOL
     Dates: start: 20180821, end: 20180821

REACTIONS (4)
  - Oxygen saturation decreased [Recovering/Resolving]
  - Torsade de pointes [Recovering/Resolving]
  - Device issue [Unknown]
  - Accidental underdose [Recovering/Resolving]
